FAERS Safety Report 8939831 (Version 1)
Quarter: 2012Q4

REPORT INFORMATION
  Report Type: 
  Country: US (occurrence: US)
  Receive Date: 20121130
  Receipt Date: 20121130
  Transmission Date: 20130627
  Serious: Yes (Other)
  Sender: FDA-Public Use
  Company Number: US-009507513-2012SP022108

PATIENT
  Age: 74 Year
  Sex: Female
  Weight: 86.17 kg

DRUGS (9)
  1. CLARITIN [Suspect]
     Indication: NASOPHARYNGITIS
     Dosage: 10 mg, ONCE
     Route: 048
     Dates: start: 20120419
  2. CLARITIN [Suspect]
     Indication: HYPERSENSITIVITY
     Dosage: 10 mg, UNK
     Route: 048
     Dates: start: 20120819, end: 20120819
  3. HYDROCHLOROTHIAZIDE [Concomitant]
     Indication: HYPERTENSION
     Dosage: UNK
  4. LOPRESSOR [Concomitant]
     Indication: HYPERTENSION
     Dosage: UNK
  5. NORVASC [Concomitant]
     Indication: HYPERTENSION
     Dosage: UNK
  6. COZAAR [Concomitant]
     Indication: HYPERTENSION
  7. LIPITOR [Concomitant]
     Indication: BLOOD CHOLESTEROL
  8. ALLOPRINOL [Concomitant]
     Indication: GOUT
  9. TYLENOL [Concomitant]
     Dosage: UNK UNK, Unknown

REACTIONS (2)
  - Blindness unilateral [Recovered/Resolved]
  - Productive cough [Unknown]
